FAERS Safety Report 21978001 (Version 3)
Quarter: 2024Q2

REPORT INFORMATION
  Report Type: Spontaneous
  Country: US (occurrence: US)
  Receive Date: 20230210
  Receipt Date: 20240403
  Transmission Date: 20240715
  Serious: Yes (Other)
  Sender: FDA-Public Use
  Company Number: US-BIOCODEX2-2022001354

PATIENT
  Age: 10 Year
  Sex: Male
  Weight: 28.6 kg

DRUGS (7)
  1. DIACOMIT [Suspect]
     Active Substance: STIRIPENTOL
     Indication: Severe myoclonic epilepsy of infancy
     Dosage: 500MG TWICE DAILY
     Route: 065
  2. DIACOMIT [Suspect]
     Active Substance: STIRIPENTOL
     Indication: Severe myoclonic epilepsy of infancy
     Dosage: 1000MG BY MOUTH TWICE DAILY
     Route: 048
  3. DIACOMIT [Suspect]
     Active Substance: STIRIPENTOL
     Indication: Severe myoclonic epilepsy of infancy
     Dosage: 250MG TWICE DAILY
     Route: 065
     Dates: start: 20220813
  4. DIACOMIT [Suspect]
     Active Substance: STIRIPENTOL
     Indication: Severe myoclonic epilepsy of infancy
     Dosage: 250 MG AND 500 MG TWO SEPARATE DOSES EACH DAY
     Route: 048
     Dates: start: 20220813
  5. DIACOMIT [Suspect]
     Active Substance: STIRIPENTOL
     Indication: Severe myoclonic epilepsy of infancy
     Dosage: 250MG AND 500MG IN TWO SEPARATE DOSES EACH DAY
     Route: 048
     Dates: start: 20220813
  6. ONFI [Concomitant]
     Active Substance: CLOBAZAM
     Indication: Severe myoclonic epilepsy of infancy
     Dosage: 6 ML IN THE MORNING?5 ML IN THE EVENING
     Route: 048
  7. FINTEPLA [Concomitant]
     Active Substance: FENFLURAMINE
     Indication: Product used for unknown indication
     Dosage: 4.5 ML, TWICE DAILY
     Route: 048

REACTIONS (4)
  - Seizure [Unknown]
  - Fatigue [Not Recovered/Not Resolved]
  - Behaviour disorder [Unknown]
  - Aggression [Unknown]

NARRATIVE: CASE EVENT DATE: 20230201
